FAERS Safety Report 9438075 (Version 1)
Quarter: 2013Q3

REPORT INFORMATION
  Report Type: Spontaneous
  Country: US (occurrence: US)
  Receive Date: 20130802
  Receipt Date: 20130802
  Transmission Date: 20140515
  Serious: No
  Sender: FDA-Public Use
  Company Number: US-BRISTOL-MYERS SQUIBB COMPANY-16802928

PATIENT
  Sex: Female

DRUGS (3)
  1. COUMADIN [Suspect]
     Dosage: TAKING HALF OF 5MG
     Dates: start: 20120704
  2. LOVENOX [Suspect]
     Indication: PULMONARY EMBOLISM
     Dates: start: 20120704, end: 20120705
  3. ASPIRIN [Suspect]
     Dates: start: 20120704

REACTIONS (1)
  - Blood disorder [Unknown]
